FAERS Safety Report 7877891-5 (Version None)
Quarter: 2011Q4

REPORT INFORMATION
  Report Type: 
  Country: None (occurrence: None)
  Receive Date: 20111031
  Receipt Date: 20111026
  Transmission Date: 20120403
  Serious: Yes (Other)
  Sender: FDA-Public Use
  Company Number: US-AMGEN-KDL362692

PATIENT
  Sex: Female

DRUGS (2)
  1. ENBREL [Suspect]
     Indication: RHEUMATOID ARTHRITIS
     Dosage: 25 MG, 2 TIMES/WK
     Route: 058
     Dates: start: 20010101
  2. ENBREL [Suspect]
     Indication: FIBROMYALGIA

REACTIONS (13)
  - FALL [None]
  - COUGH [None]
  - DYSPNOEA [None]
  - SKULL FRACTURE [None]
  - TOOTH FRACTURE [None]
  - ARTHRALGIA [None]
  - PRURITUS [None]
  - SPINAL FRACTURE [None]
  - TOOTH ABSCESS [None]
  - CONVULSION [None]
  - MYALGIA [None]
  - INFLUENZA LIKE ILLNESS [None]
  - RASH [None]
